FAERS Safety Report 9618155 (Version 2)
Quarter: 2013Q4

REPORT INFORMATION
  Report Type: Report from Study
  Country: CN (occurrence: CN)
  Receive Date: 20131014
  Receipt Date: 20131204
  Transmission Date: 20140711
  Serious: Yes (Other)
  Sender: FDA-Public Use
  Company Number: CN-ROCHE-1288521

PATIENT
  Age: 52 Year
  Sex: Female

DRUGS (1)
  1. PEGASYS [Suspect]
     Indication: HEPATITIS C
     Route: 058
     Dates: start: 20131001, end: 20131008

REACTIONS (3)
  - Blood bilirubin increased [Unknown]
  - Jaundice [Recovering/Resolving]
  - Dizziness [Recovering/Resolving]
